FAERS Safety Report 16754477 (Version 1)
Quarter: 2019Q4

REPORT INFORMATION
  Report Type: Spontaneous
  Country: US (occurrence: US)
  Receive Date: 20190828
  Receipt Date: 20190828
  Transmission Date: 20200122
  Serious: Yes (Other)
  Sender: FDA-Public Use
  Company Number: None

PATIENT
  Age: 64 Year
  Sex: Male
  Weight: 76 kg

DRUGS (1)
  1. GLECAPREVIR/PIBRENTASVIR [Suspect]
     Active Substance: GLECAPREVIR\PIBRENTASVIR
     Indication: HEPATITIS C
     Route: 048
     Dates: start: 20190717, end: 20190804

REACTIONS (5)
  - Fatigue [None]
  - Decreased appetite [None]
  - Nausea [None]
  - Dyspnoea [None]
  - End stage renal disease [None]

NARRATIVE: CASE EVENT DATE: 20190807
